FAERS Safety Report 11149517 (Version 1)
Quarter: 2015Q2

REPORT INFORMATION
  Report Type: Report from Study
  Country: TW (occurrence: TW)
  Receive Date: 20150529
  Receipt Date: 20150529
  Transmission Date: 20150821
  Serious: Yes (Hospitalization)
  Sender: FDA-Public Use
  Company Number: TW-SA-2015SA072800

PATIENT
  Age: 66 Year
  Sex: Female
  Weight: 45 kg

DRUGS (2)
  1. CLOPIDOGREL BISULFATE. [Suspect]
     Active Substance: CLOPIDOGREL BISULFATE
     Route: 065
     Dates: start: 20141230
  2. ASPIRIN. [Suspect]
     Active Substance: ASPIRIN
     Route: 065
     Dates: start: 20141226

REACTIONS (1)
  - Disseminated tuberculosis [Recovered/Resolved]

NARRATIVE: CASE EVENT DATE: 20150225
